FAERS Safety Report 6744930-4 (Version None)
Quarter: 2010Q2

REPORT INFORMATION
  Report Type: 
  Country: None (occurrence: None)
  Receive Date: 20100527
  Receipt Date: 20100517
  Transmission Date: 20101027
  Serious: Yes (Hospitalization, Other)
  Sender: FDA-Public Use
  Company Number: TW-PFIZER INC-2010062120

PATIENT
  Age: 42 Year
  Sex: Female

DRUGS (5)
  1. DOXORUBICIN HCL [Suspect]
     Indication: T-CELL LYMPHOMA
  2. VINCRISTINE SULFATE [Suspect]
     Indication: T-CELL LYMPHOMA
  3. CYCLOPHOSPHAMIDE [Suspect]
     Indication: T-CELL LYMPHOMA
  4. BLEOMYCIN [Suspect]
     Indication: T-CELL LYMPHOMA
  5. PREDNISOLONE [Suspect]
     Indication: T-CELL LYMPHOMA

REACTIONS (2)
  - OVARIAN DISORDER [None]
  - VAGINAL OBSTRUCTION [None]
